FAERS Safety Report 7676510-0 (Version None)
Quarter: 2011Q3

REPORT INFORMATION
  Report Type: 
  Country: None (occurrence: None)
  Receive Date: 20110811
  Receipt Date: 20110805
  Transmission Date: 20111222
  Serious: Yes (Other)
  Sender: FDA-Public Use
  Company Number: US-ABBOTT-11P-163-0842886-00

PATIENT
  Sex: Male
  Weight: 81.266 kg

DRUGS (6)
  1. CRESTOR [Concomitant]
     Indication: BLOOD CHOLESTEROL INCREASED
  2. METHOTREXATE [Concomitant]
     Indication: PSORIASIS
  3. UNKNOWN MEDICATION [Concomitant]
     Indication: HYPERTENSION
  4. HUMIRA [Suspect]
     Dates: start: 20110728
  5. VITAMIN TAB [Concomitant]
     Indication: VITAMIN SUPPLEMENTATION
  6. HUMIRA [Suspect]
     Indication: PSORIASIS
     Dates: start: 20080101, end: 20110301

REACTIONS (5)
  - FATIGUE [None]
  - CORONARY ARTERY OCCLUSION [None]
  - CHEST PAIN [None]
  - HEPATIC ENZYME INCREASED [None]
  - DRUG INEFFECTIVE [None]
